FAERS Safety Report 4551408-5 (Version None)
Quarter: 2005Q1

REPORT INFORMATION
  Report Type: 
  Country: None (occurrence: None)
  Receive Date: 20050111
  Receipt Date: 20050111
  Transmission Date: 20050727
  Serious: Yes (Life-Threatening, Hospitalization, Disabling)
  Sender: FDA-Public Use
  Company Number: None

PATIENT
  Age: 76 Year
  Sex: Female
  Weight: 68.0396 kg

DRUGS (3)
  1. PERCOCET [Suspect]
     Indication: ANALGESIC EFFECT
     Dosage: 20 M X 12/HRS + 2
     Dates: start: 20040112
  2. OXYCONTIN [Suspect]
     Indication: ANALGESIC EFFECT
     Dosage: +3 AS NEEDED
  3. DILAUDID [Suspect]

REACTIONS (10)
  - AMNESIA [None]
  - CARDIAC FAILURE CONGESTIVE [None]
  - CARPAL TUNNEL DECOMPRESSION [None]
  - DEPRESSION [None]
  - DIABETES MELLITUS [None]
  - DISLOCATION OF VERTEBRA [None]
  - LIMB INJURY [None]
  - PAIN [None]
  - POST PROCEDURAL COMPLICATION [None]
  - PSYCHOTIC DISORDER [None]
